FAERS Safety Report 4391772-3 (Version None)
Quarter: 2004Q3

REPORT INFORMATION
  Report Type: 
  Country: None (occurrence: None)
  Receive Date: 20040701
  Receipt Date: 20040621
  Transmission Date: 20050211
  Serious: Yes (Other)
  Sender: FDA-Public Use
  Company Number: 001794

PATIENT
  Age: 38 Year
  Sex: Female
  Weight: 59 kg

DRUGS (1)
  1. SEASONALE [Suspect]
     Indication: CONTRACEPTION
     Dosage: 1.00  TABLET, QD, ORAL
     Route: 048
     Dates: start: 20040509, end: 20040610

REACTIONS (3)
  - CONVULSION [None]
  - HEADACHE [None]
  - VISUAL DISTURBANCE [None]
